FAERS Safety Report 8968604 (Version 2)
Quarter: 2013Q1

REPORT INFORMATION
  Report Type: Spontaneous
  Country: GB (occurrence: GB)
  Receive Date: 20121217
  Receipt Date: 20130209
  Transmission Date: 20140127
  Serious: Yes (Hospitalization)
  Sender: FDA-Public Use
  Company Number: GB-MYLANLABS-2012S1025039

PATIENT
  Age: 59 Year
  Sex: Female
  Weight: 52 kg

DRUGS (10)
  1. OMEPRAZOLE [Suspect]
     Indication: PROPHYLAXIS
     Route: 048
  2. TELFAST [Suspect]
     Indication: PRURITUS
     Route: 048
     Dates: start: 20121107
  3. ADCAL D3 [Concomitant]
     Indication: MINERAL SUPPLEMENTATION
     Route: 048
  4. CANDESARTAN CILEXETIL [Concomitant]
     Indication: BLOOD PRESSURE
     Route: 048
  5. CROTAMITON [Concomitant]
     Indication: PRODUCT USED FOR UNKNOWN INDICATION
     Route: 061
  6. DARBEPOETIN ALFA [Concomitant]
     Indication: MINERAL SUPPLEMENTATION
  7. DIPROBASE /01132701/ [Concomitant]
     Indication: PRODUCT USED FOR UNKNOWN INDICATION
     Route: 061
  8. DOXAZOSIN MESILATE [Concomitant]
     Indication: PRODUCT USED FOR UNKNOWN INDICATION
  9. FOLIC ACID [Concomitant]
     Indication: PRODUCT USED FOR UNKNOWN INDICATION
     Route: 048
  10. PREDNISOLONE [Concomitant]
     Indication: PRODUCT USED FOR UNKNOWN INDICATION
     Route: 048

REACTIONS (4)
  - Drug interaction [Unknown]
  - Pain [Unknown]
  - Paraesthesia [Not Recovered/Not Resolved]
  - Muscular weakness [Not Recovered/Not Resolved]
